FAERS Safety Report 7338876-0 (Version None)
Quarter: 2011Q1

REPORT INFORMATION
  Report Type: 
  Country: None (occurrence: None)
  Receive Date: 20110308
  Receipt Date: 20110225
  Transmission Date: 20110831
  Serious: Yes (Hospitalization)
  Sender: FDA-Public Use
  Company Number: US-ASTRAZENECA-2010SE51621

PATIENT
  Age: 80 Year
  Sex: Female

DRUGS (8)
  1. FUROSEMIDE [Concomitant]
     Route: 048
  2. FUROSEMIDE [Concomitant]
     Route: 048
  3. VITAMIN B COMPLEX CAP [Concomitant]
  4. OXYBUTYNIN [Concomitant]
     Route: 048
  5. CYCLOBENZAPRINE HCL [Concomitant]
     Route: 048
  6. NEXIUM [Suspect]
     Route: 048
  7. HYDROCODONE-ACETAMINOPHEN [Concomitant]
     Dosage: 7.5-750 MG TWICE A DAY
     Route: 048
  8. VIT C [Concomitant]

REACTIONS (11)
  - SURGERY [None]
  - PAIN [None]
  - BALANCE DISORDER [None]
  - ROTATOR CUFF SYNDROME [None]
  - JOINT INJURY [None]
  - TREMOR [None]
  - ARTHRITIS [None]
  - FEELING ABNORMAL [None]
  - HIATUS HERNIA [None]
  - MALAISE [None]
  - ABDOMINAL DISCOMFORT [None]
